FAERS Safety Report 7707831-0 (Version None)
Quarter: 2011Q3

REPORT INFORMATION
  Report Type: 
  Country: None (occurrence: None)
  Receive Date: 20110824
  Receipt Date: 20110810
  Transmission Date: 20111222
  Serious: Yes (Hospitalization, Other)
  Sender: FDA-Public Use
  Company Number: PL-BAYER-2011-074750

PATIENT
  Age: 62 Year
  Sex: Male
  Weight: 56 kg

DRUGS (12)
  1. ACETYLSALICYLIC ACID SRT [Suspect]
     Indication: ACUTE CORONARY SYNDROME
     Dates: end: 20090724
  2. RAMIPRIL [Concomitant]
     Indication: ILL-DEFINED DISORDER
  3. MULTI-VITAMINS [Concomitant]
     Indication: ILL-DEFINED DISORDER
  4. CLOPIDOGREL [Interacting]
     Dates: end: 20090724
  5. ACIDUM FOLICUM [Concomitant]
     Indication: ILL-DEFINED DISORDER
  6. CLOPIDOGREL [Interacting]
     Indication: ACUTE CORONARY SYNDROME
  7. PANTOPRAZOLE [Concomitant]
     Indication: ILL-DEFINED DISORDER
  8. BLINDED RIVAROXABAN [Interacting]
     Indication: ACUTE CORONARY SYNDROME
     Dosage: DOSAGE FORM: TABLET
     Route: 048
     Dates: start: 20090729, end: 20110715
  9. VITRUM CALCIUM + VIT D3 [Concomitant]
     Indication: ILL-DEFINED DISORDER
  10. ACETYLSALICYLIC ACID SRT [Interacting]
  11. SORBIFER [Concomitant]
     Indication: ILL-DEFINED DISORDER
  12. ATORVASTATIN [Concomitant]
     Indication: ILL-DEFINED DISORDER

REACTIONS (1)
  - ANAEMIA [None]
